FAERS Safety Report 17851820 (Version 1)
Quarter: 2020Q2

REPORT INFORMATION
  Report Type: Spontaneous
  Country: CN (occurrence: CN)
  Receive Date: 20200602
  Receipt Date: 20200602
  Transmission Date: 20200714
  Serious: Yes (Hospitalization, Other)
  Sender: FDA-Public Use
  Company Number: CN-SA-2020SA138294

PATIENT

DRUGS (4)
  1. ELOXATIN [Suspect]
     Active Substance: OXALIPLATIN
     Indication: RECTAL CANCER
     Dosage: 136 MG
     Route: 041
     Dates: start: 20200507, end: 20200507
  2. CALCIUM FOLINATE [Concomitant]
     Active Substance: LEUCOVORIN CALCIUM
     Dosage: 660 MG
  3. ELOXATIN [Suspect]
     Active Substance: OXALIPLATIN
     Dosage: 100 ML
     Route: 041
  4. GLUCOSE [Concomitant]
     Active Substance: DEXTROSE
     Indication: RECTAL CANCER
     Dosage: UNK
     Route: 041
     Dates: start: 20200507, end: 20200507

REACTIONS (2)
  - Rash [Recovering/Resolving]
  - Pruritus [Recovering/Resolving]

NARRATIVE: CASE EVENT DATE: 20200507
